FAERS Safety Report 24365131 (Version 2)
Quarter: 2025Q1

REPORT INFORMATION
  Report Type: Spontaneous
  Country: US (occurrence: US)
  Receive Date: 20240926
  Receipt Date: 20250130
  Transmission Date: 20250408
  Serious: Yes (Hospitalization, Other)
  Sender: MERCK
  Company Number: US-009507513-2409USA008505

PATIENT
  Sex: Female
  Weight: 68.49 kg

DRUGS (3)
  1. WINREVAIR [Suspect]
     Active Substance: SOTATERCEPT-CSRK
     Indication: Product used for unknown indication
     Dosage: 0.4 MILLILITER, Q3W
     Route: 058
     Dates: start: 202408
  2. REMODULIN [Suspect]
     Active Substance: TREPROSTINIL
     Indication: Pulmonary arterial hypertension
     Route: 058
     Dates: start: 202205
  3. OPSUMIT [Concomitant]
     Active Substance: MACITENTAN

REACTIONS (4)
  - Unresponsive to stimuli [Unknown]
  - Mental status changes [Unknown]
  - Seizure [Unknown]
  - Systemic lupus erythematosus [Unknown]

NARRATIVE: CASE EVENT DATE: 20240101
